FAERS Safety Report 7277398-2 (Version None)
Quarter: 2011Q1

REPORT INFORMATION
  Report Type: 
  Country: None (occurrence: None)
  Receive Date: 20110207
  Receipt Date: 20110131
  Transmission Date: 20110831
  Serious: No
  Sender: FDA-Public Use
  Company Number: US-PFIZER INC-US-WYE-H17996110

PATIENT
  Sex: Female
  Weight: 78.9 kg

DRUGS (8)
  1. IBUPROFEN [Suspect]
     Indication: PAIN
     Dosage: ^MORE THEN ONCE DAILY^
     Route: 048
     Dates: start: 20100101
  2. PRISTIQ [Suspect]
     Dosage: 50.0 MG, 1X/DAY
     Route: 048
     Dates: start: 20100920
  3. NORCO [Concomitant]
     Route: 048
  4. XANAX [Concomitant]
     Route: 048
  5. IBUPROFEN [Suspect]
     Indication: HEADACHE
     Dosage: 800.0 MG, 1X/DAY
     Route: 048
     Dates: end: 20100101
  6. ZOLOFT [Concomitant]
     Route: 048
  7. IBUPROFEN [Suspect]
     Indication: ARTHRITIS
     Dosage: 800.0 MG, 3X/DAY
     Route: 048
  8. CARISOPRODOL [Concomitant]
     Route: 048

REACTIONS (2)
  - DRUG INEFFECTIVE [None]
  - HEADACHE [None]
